FAERS Safety Report 4512357-1 (Version None)
Quarter: 2004Q4

REPORT INFORMATION
  Report Type: 
  Country: None (occurrence: None)
  Receive Date: 20041123
  Receipt Date: 20041115
  Transmission Date: 20050328
  Serious: Yes (Hospitalization)
  Sender: FDA-Public Use
  Company Number: 2004CG02285

PATIENT
  Age: 56 Year
  Sex: Female

DRUGS (11)
  1. OMEPRAZOLE [Suspect]
     Dosage: 20 MG DAILY PO
     Route: 048
     Dates: start: 20040706, end: 20040723
  2. COLCHICINE [Suspect]
     Indication: GOUT
     Dosage: 1 MG DAILY PO
     Route: 048
     Dates: start: 20040618, end: 20040706
  3. COLCHIMAX [Suspect]
     Dosage: 2 MG + 100 MG _50 MG QD
     Dates: start: 20040706
  4. TAHOR [Concomitant]
  5. TOPALGIC ^HOUDE^ [Concomitant]
  6. KREDEX [Concomitant]
  7. CORDARONE [Concomitant]
  8. PREVISCAN [Concomitant]
  9. LEXOMIL [Concomitant]
  10. ZOLPIDEM TARTRATE [Concomitant]
  11. LASILIX [Concomitant]

REACTIONS (4)
  - FEBRILE NEUTROPENIA [None]
  - HAEMOGLOBIN DECREASED [None]
  - PLATELET COUNT DECREASED [None]
  - POLYARTHRITIS [None]
